FAERS Safety Report 8707606 (Version 2)
Quarter: 2013Q4

REPORT INFORMATION
  Report Type: Spontaneous
  Country: US (occurrence: US)
  Receive Date: 20120805
  Receipt Date: 20131106
  Transmission Date: 20140711
  Serious: Yes (Hospitalization)
  Sender: FDA-Public Use
  Company Number: US-009507513-1207USA011420

PATIENT
  Sex: Female

DRUGS (3)
  1. VICTRELIS [Suspect]
     Route: 048
  2. PEGASYS [Suspect]
     Route: 058
  3. RIBAPAK [Suspect]
     Dosage: UNK
     Route: 048

REACTIONS (9)
  - White blood cell count decreased [Unknown]
  - Memory impairment [Unknown]
  - Malnutrition [Unknown]
  - Tremor [Unknown]
  - Nausea [Unknown]
  - Platelet count decreased [Unknown]
  - Red blood cell count decreased [Unknown]
  - Vomiting [Unknown]
  - Dysgeusia [Unknown]
